FAERS Safety Report 12613544 (Version 1)
Quarter: 2016Q3

REPORT INFORMATION
  Report Type: Report from Study
  Country: US (occurrence: US)
  Receive Date: 20160802
  Receipt Date: 20160802
  Transmission Date: 20161109
  Serious: Yes (Other)
  Sender: FDA-Public Use
  Company Number: US-ROCHE-1805699

PATIENT
  Age: 72 Year
  Sex: Male
  Weight: 94.6 kg

DRUGS (4)
  1. LEUPROLIDE ACETATE. [Suspect]
     Active Substance: LEUPROLIDE ACETATE
     Indication: PROSTATE CANCER
     Dosage: TREATMENT ASSIGNED CODE: GROUP A1, COURSE 1
     Route: 030
     Dates: start: 20111103
  2. VISMODEGIB [Suspect]
     Active Substance: VISMODEGIB
     Dosage: TREATMENT ASSIGNED CODE: GROUP A1, COURSE 1
     Route: 048
     Dates: start: 20111103
  3. VISMODEGIB [Suspect]
     Active Substance: VISMODEGIB
     Dosage: TREATMENT ASSIGNED CODE: GROUP A1, COURSE 2
     Route: 048
     Dates: start: 20111201
  4. VISMODEGIB [Suspect]
     Active Substance: VISMODEGIB
     Indication: PROSTATE CANCER
     Dosage: TREATMENT ASSIGNED CODE: GROUP A1, COURSE 3
     Route: 048
     Dates: start: 20111230

REACTIONS (1)
  - Hypertension [Unknown]
